FAERS Safety Report 6927524-7 (Version None)
Quarter: 2010Q3

REPORT INFORMATION
  Report Type: 
  Country: None (occurrence: None)
  Receive Date: 20100816
  Receipt Date: 20100816
  Transmission Date: 20110219
  Serious: No
  Sender: FDA-Public Use
  Company Number: None

PATIENT
  Age: 29 Year
  Sex: Female
  Weight: 59.8748 kg

DRUGS (1)
  1. LAMICTAL [Suspect]
     Dosage: 100 MG 1 BID PO
     Route: 048
     Dates: start: 20100501, end: 20100729

REACTIONS (1)
  - RASH [None]
